FAERS Safety Report 23176350 (Version 2)
Quarter: 2023Q4

REPORT INFORMATION
  Report Type: Spontaneous
  Country: GB (occurrence: GB)
  Receive Date: 20231113
  Receipt Date: 20231227
  Transmission Date: 20240110
  Serious: Yes (Hospitalization, Other)
  Sender: FDA-Public Use
  Company Number: None

PATIENT

DRUGS (1)
  1. PIRFENIDONE [Suspect]
     Active Substance: PIRFENIDONE
     Indication: Product used for unknown indication
     Dosage: 801 MG 3 PER DAY
     Route: 065

REACTIONS (4)
  - Angina pectoris [Not Recovered/Not Resolved]
  - Fall [Unknown]
  - Orthostatic hypertension [Unknown]
  - Dizziness [Unknown]
